FAERS Safety Report 6416148-6 (Version None)
Quarter: 2009Q4

REPORT INFORMATION
  Report Type: 
  Country: None (occurrence: None)
  Receive Date: 20091023
  Receipt Date: 20091013
  Transmission Date: 20100525
  Serious: Yes (Other)
  Sender: FDA-Public Use
  Company Number: 002112

PATIENT
  Age: 47 Year
  Sex: Male

DRUGS (4)
  1. LACOSAMIDE [Suspect]
     Indication: CONVULSION
     Dosage: 400 MG QD ORAL, 200 MG QD ORAL
     Route: 048
     Dates: start: 20090101, end: 20090826
  2. LACOSAMIDE [Suspect]
     Indication: CONVULSION
     Dosage: 400 MG QD ORAL, 200 MG QD ORAL
     Route: 048
     Dates: start: 20090826
  3. LAMICTAL [Concomitant]
  4. GABAPENTIN [Concomitant]

REACTIONS (6)
  - CHEST PAIN [None]
  - CHILLS [None]
  - DIARRHOEA [None]
  - NAUSEA [None]
  - RENAL FAILURE ACUTE [None]
  - VOMITING [None]
